FAERS Safety Report 10831971 (Version 1)
Quarter: 2015Q1

REPORT INFORMATION
  Report Type: Spontaneous
  Country: US (occurrence: US)
  Receive Date: 20150219
  Receipt Date: 20150219
  Transmission Date: 20150721
  Serious: No
  Sender: FDA-Public Use
  Company Number: US-ZOGENIX, INC.-2015ZX000011

PATIENT
  Age: 38 Year
  Sex: Female
  Weight: 121.67 kg

DRUGS (2)
  1. ZOHYDRO [Suspect]
     Active Substance: HYDROCODONE BITARTRATE
     Indication: PAIN
     Route: 048
     Dates: start: 201411, end: 201412
  2. HYDROCODONE [Concomitant]
     Active Substance: HYDROCODONE
     Indication: BREAKTHROUGH PAIN
     Route: 048
     Dates: start: 2008

REACTIONS (3)
  - Hypertrophy of tongue papillae [Recovered/Resolved]
  - Sensation of foreign body [Recovered/Resolved]
  - Breakthrough pain [Unknown]

NARRATIVE: CASE EVENT DATE: 201411
